FAERS Safety Report 9240459 (Version 1)
Quarter: 2013Q1

REPORT INFORMATION
  Report Type: Spontaneous
  Country: US (occurrence: None)
  Receive Date: 20121107
  Receipt Date: 20121107
  Transmission Date: 20140127
  Serious: No
  Sender: FDA-Public Use
  Company Number: 2012HGS-003897

PATIENT
  Age: 22 Year
  Sex: Female

DRUGS (3)
  1. BENLYSTA [Suspect]
     Indication: SYSTEMIC LUPUS ERYTHEMATOSUS
     Dosage: 10 MG/KG, 1 IN 28 D, INTRAVENOUS
     Dates: start: 20111212
  2. PLAQUENIL(HYDROXYCHLOROQUINE SULFATE)(HYDROXYCHLOROQUINE SULFATE) [Concomitant]
  3. DAYPRO(OXAPROZIN)(OXAPROZIN) [Concomitant]

REACTIONS (5)
  - Pain [None]
  - Arthralgia [None]
  - Alopecia [None]
  - Rash [None]
  - Nausea [None]
